FAERS Safety Report 21064416 (Version 1)
Quarter: 2022Q3

REPORT INFORMATION
  Report Type: Spontaneous
  Country: US (occurrence: US)
  Receive Date: 20220711
  Receipt Date: 20220711
  Transmission Date: 20221027
  Serious: No
  Sender: FDA-Public Use
  Company Number: US-BAYER-2022A094844

PATIENT
  Age: 25 Year
  Sex: Female

DRUGS (2)
  1. MIRENA [Suspect]
     Active Substance: LEVONORGESTREL
     Indication: Contraception
     Dosage: 20?G/DAY
     Route: 015
     Dates: start: 20220512
  2. MIRENA [Suspect]
     Active Substance: LEVONORGESTREL
     Indication: Heavy menstrual bleeding

REACTIONS (6)
  - Back pain [None]
  - Vulvovaginal pain [None]
  - Hypomenorrhoea [None]
  - Vaginal haemorrhage [None]
  - Vaginal discharge [None]
  - Feeling abnormal [None]

NARRATIVE: CASE EVENT DATE: 20220101
